FAERS Safety Report 12251580 (Version 1)
Quarter: 2016Q2

REPORT INFORMATION
  Report Type: Spontaneous
  Country: US (occurrence: US)
  Receive Date: 20160410
  Receipt Date: 20160410
  Transmission Date: 20160815
  Serious: Yes (Other)
  Sender: FDA-Public Use
  Company Number: US-JNJFOC-20160311398

PATIENT
  Age: 49 Year
  Sex: Male
  Weight: 89.36 kg

DRUGS (5)
  1. INVEGA SUSTENNA [Suspect]
     Active Substance: PALIPERIDONE PALMITATE
     Indication: DEPRESSION
     Route: 030
     Dates: start: 2014, end: 2016
  2. VALSARTAN. [Concomitant]
     Active Substance: VALSARTAN
     Indication: HYPERTENSION
     Route: 065
  3. METOPROLOL. [Concomitant]
     Active Substance: METOPROLOL
     Indication: HYPERTENSION
     Route: 065
  4. INVEGA SUSTENNA [Suspect]
     Active Substance: PALIPERIDONE PALMITATE
     Indication: DEPRESSION
     Route: 030
     Dates: start: 201304, end: 2014
  5. XANAX [Concomitant]
     Active Substance: ALPRAZOLAM
     Indication: PRODUCT USED FOR UNKNOWN INDICATION
     Route: 065

REACTIONS (19)
  - Anger [Recovered/Resolved]
  - Blood glucose increased [Recovered/Resolved]
  - Seizure [Unknown]
  - Therapeutic product ineffective [Unknown]
  - Memory impairment [Recovered/Resolved]
  - Adverse drug reaction [Recovered/Resolved]
  - Cyst [Unknown]
  - Delusion [Recovered/Resolved]
  - Extra dose administered [Unknown]
  - Disorientation [Not Recovered/Not Resolved]
  - Product use issue [Unknown]
  - Gait disturbance [Recovered/Resolved]
  - Confusional state [Recovered/Resolved]
  - Weight increased [Recovered/Resolved]
  - Aggression [Unknown]
  - Sedation [Recovered/Resolved]
  - Off label use [Unknown]
  - Visual impairment [Not Recovered/Not Resolved]
  - Dizziness [Recovered/Resolved]

NARRATIVE: CASE EVENT DATE: 2013
